FAERS Safety Report 17874527 (Version 1)
Quarter: 2020Q2

REPORT INFORMATION
  Report Type: Spontaneous
  Country: US (occurrence: US)
  Receive Date: 20200609
  Receipt Date: 20200609
  Transmission Date: 20200714
  Serious: Yes (Hospitalization, Other)
  Sender: FDA-Public Use
  Company Number: US-APOTEX-2020AP011902

PATIENT

DRUGS (2)
  1. FLECAINIDE [Suspect]
     Active Substance: FLECAINIDE
     Indication: ATRIAL FLUTTER
     Dosage: UNK
     Route: 064
  2. SOTALOL. [Suspect]
     Active Substance: SOTALOL
     Indication: ATRIAL FLUTTER
     Dosage: UNK
     Route: 064

REACTIONS (6)
  - Toxicity to various agents [Unknown]
  - Foetal exposure during pregnancy [Unknown]
  - Therapeutic product effect incomplete [Unknown]
  - Premature baby [Unknown]
  - Bradycardia foetal [Recovering/Resolving]
  - Foetal hypokinesia [Recovering/Resolving]
